FAERS Safety Report 5703294-5 (Version None)
Quarter: 2008Q2

REPORT INFORMATION
  Report Type: 
  Country: None (occurrence: None)
  Receive Date: 20080411
  Receipt Date: 20080331
  Transmission Date: 20081010
  Serious: Yes (Other)
  Sender: FDA-Public Use
  Company Number: US-PFIZER INC-2008018690

PATIENT
  Sex: Female
  Weight: 77.2 kg

DRUGS (8)
  1. CHANTIX [Suspect]
     Indication: SMOKING CESSATION THERAPY
     Route: 048
  2. ALBUTEROL [Concomitant]
     Indication: ASTHMA
  3. SYNTHROID [Concomitant]
     Indication: THYROID DISORDER
  4. DYAZIDE [Concomitant]
  5. ZOLOFT [Concomitant]
     Indication: DEPRESSION
  6. TRAZODONE HCL [Concomitant]
     Indication: DIABETES MELLITUS
  7. METFORMIN HCL [Concomitant]
     Indication: DIABETES MELLITUS
  8. DILTIAZEM [Concomitant]
     Indication: HYPERTENSION

REACTIONS (10)
  - ARTHRALGIA [None]
  - CHEST DISCOMFORT [None]
  - DYSPNOEA [None]
  - FATIGUE [None]
  - INSOMNIA [None]
  - LYMPH NODE PAIN [None]
  - NECK PAIN [None]
  - PAIN IN EXTREMITY [None]
  - PAIN IN JAW [None]
  - THROAT TIGHTNESS [None]
